FAERS Safety Report 5643939-1 (Version None)
Quarter: 2008Q1

REPORT INFORMATION
  Report Type: 
  Country: None (occurrence: None)
  Receive Date: 20080226
  Receipt Date: 20080220
  Transmission Date: 20080703
  Serious: Yes (Other)
  Sender: FDA-Public Use
  Company Number: CHPA2008US03166

PATIENT
  Age: 70 Year
  Sex: Female

DRUGS (2)
  1. MAALOX MS TOTAL STOMACH RELIEF (NCH)(BISMUTH SUBSALICYLATE) SUSPENSION [Suspect]
     Indication: GASTRITIS
     Dosage: 4 TABLESPOONS AT NIGHT, ORAL; 2 TABLESPOONS AT NIGHT, ORAL
     Route: 048
     Dates: start: 20080218
  2. MAALOX MS TOTAL STOMACH RELIEF (NCH)(BISMUTH SUBSALICYLATE) SUSPENSION [Suspect]
     Indication: GASTRITIS
     Dosage: 4 TABLESPOONS AT NIGHT, ORAL; 2 TABLESPOONS AT NIGHT, ORAL
     Route: 048
     Dates: start: 20080219

REACTIONS (3)
  - FAECES DISCOLOURED [None]
  - OCULAR ICTERUS [None]
  - YELLOW SKIN [None]
